FAERS Safety Report 16136048 (Version 1)
Quarter: 2019Q1

REPORT INFORMATION
  Report Type: Spontaneous
  Country: CA (occurrence: CA)
  Receive Date: 20190329
  Receipt Date: 20190329
  Transmission Date: 20190418
  Serious: Yes (Other)
  Sender: FDA-Public Use
  Company Number: PHHY2019CA069377

PATIENT
  Sex: Female

DRUGS (1)
  1. AZITHROMYCIN SANDOZ [Suspect]
     Active Substance: AZITHROMYCIN ANHYDROUS
     Indication: INFLUENZA
     Dosage: UNK
     Route: 065

REACTIONS (4)
  - Nausea [Unknown]
  - Anxiety [Unknown]
  - Diarrhoea [Unknown]
  - Dyspnoea [Unknown]
